FAERS Safety Report 11988304 (Version 1)
Quarter: 2016Q1

REPORT INFORMATION
  Report Type: Spontaneous
  Country: GB (occurrence: GB)
  Receive Date: 20160202
  Receipt Date: 20160202
  Transmission Date: 20160526
  Serious: Yes (Hospitalization)
  Sender: FDA-Public Use
  Company Number: GB-SA-2016SA011847

PATIENT
  Sex: Female
  Weight: 65.3 kg

DRUGS (3)
  1. LEFLUNOMIDE. [Suspect]
     Active Substance: LEFLUNOMIDE
     Indication: RHEUMATOID ARTHRITIS
     Route: 048
     Dates: start: 20151108, end: 20160106
  2. SULPHASALAZINE [Concomitant]
     Active Substance: SULFASALAZINE
     Indication: RHEUMATOID ARTHRITIS
     Dates: start: 201405, end: 201601
  3. FOLIC ACID. [Concomitant]
     Active Substance: FOLIC ACID
     Dates: end: 201601

REACTIONS (6)
  - Jaundice [Recovering/Resolving]
  - Abdominal pain [Recovering/Resolving]
  - Toxicity to various agents [Unknown]
  - Hepatotoxicity [Recovering/Resolving]
  - Chest pain [Recovering/Resolving]
  - Acute hepatic failure [Recovering/Resolving]

NARRATIVE: CASE EVENT DATE: 20160101
